FAERS Safety Report 6708297-X (Version None)
Quarter: 2010Q2

REPORT INFORMATION
  Report Type: 
  Country: None (occurrence: None)
  Receive Date: 20100503
  Receipt Date: 20090416
  Transmission Date: 20101027
  Serious: No
  Sender: FDA-Public Use
  Company Number: US-ASTRAZENECA-2009UW09579

PATIENT
  Age: 80 Year
  Sex: Female
  Weight: 95.3 kg

DRUGS (12)
  1. NEXIUM [Suspect]
     Indication: GASTROOESOPHAGEAL REFLUX DISEASE
     Route: 048
     Dates: start: 20090310
  2. THYROXIN [Concomitant]
  3. LIPITOR [Concomitant]
  4. ENABLEX [Concomitant]
  5. BENICAR [Concomitant]
  6. LOVAZA [Concomitant]
  7. CALTRATE 600 [Concomitant]
  8. MULTI-VITAMIN [Concomitant]
  9. NIACIN [Concomitant]
  10. ASPIRIN [Concomitant]
  11. ESTER C [Concomitant]
  12. GLUCOSAMINE/CHONDROTIN [Concomitant]

REACTIONS (2)
  - CHROMATURIA [None]
  - URINE ODOUR ABNORMAL [None]
